FAERS Safety Report 5286865-2 (Version None)
Quarter: 2007Q1

REPORT INFORMATION
  Report Type: 
  Country: None (occurrence: None)
  Receive Date: 20070116
  Receipt Date: 20061103
  Transmission Date: 20070707
  Serious: No
  Sender: FDA-Public Use
  Company Number: 2006SP003920

PATIENT
  Age: 27 Year
  Sex: Female
  Weight: 56.6996 kg

DRUGS (6)
  1. LUNESTA [Suspect]
     Indication: INSOMNIA
     Dosage: 3 MG, HS, ORAL
     Route: 048
     Dates: start: 20061011, end: 20061017
  2. PAXIL [Suspect]
     Indication: DEPRESSION
     Dosage: SEE IMAGE
     Route: 048
     Dates: end: 20041010
  3. PAXIL [Suspect]
     Indication: DEPRESSION
     Dosage: SEE IMAGE
     Route: 048
     Dates: start: 20061011
  4. SONATA [Concomitant]
  5. NEXIUM [Concomitant]
  6. LORAZEPAM [Concomitant]

REACTIONS (1)
  - INSOMNIA [None]
